FAERS Safety Report 7582022-5 (Version None)
Quarter: 2011Q2

REPORT INFORMATION
  Report Type: 
  Country: None (occurrence: None)
  Receive Date: 20110630
  Receipt Date: 20110622
  Transmission Date: 20111010
  Serious: No
  Sender: FDA-Public Use
  Company Number: US-BIOGENIDEC-2011BI004047

PATIENT
  Sex: Female

DRUGS (1)
  1. TYSABRI [Suspect]
     Indication: MULTIPLE SCLEROSIS
     Route: 042
     Dates: start: 20091209

REACTIONS (10)
  - AMNESIA [None]
  - SOMNOLENCE [None]
  - PAIN [None]
  - STRESS [None]
  - MULTIPLE SCLEROSIS RELAPSE [None]
  - MALAISE [None]
  - FALL [None]
  - TEMPERATURE REGULATION DISORDER [None]
  - HEADACHE [None]
  - INFLUENZA [None]
